FAERS Safety Report 10982851 (Version 1)
Quarter: 2015Q2

REPORT INFORMATION
  Report Type: Spontaneous
  Country: US (occurrence: None)
  Receive Date: 20150402
  Receipt Date: 20150402
  Transmission Date: 20150821
  Serious: Yes (Hospitalization)
  Sender: FDA-Public Use
  Company Number: None

PATIENT
  Age: 91 Year
  Sex: Male
  Weight: 91.8 kg

DRUGS (1)
  1. LISINOPRIL. [Suspect]
     Active Substance: LISINOPRIL
     Indication: HYPERTENSION
     Route: 048
     Dates: start: 20120326, end: 20150320

REACTIONS (4)
  - Acute kidney injury [None]
  - Blood creatinine increased [None]
  - Hyperkalaemia [None]
  - Blood urea increased [None]

NARRATIVE: CASE EVENT DATE: 20150319
